FAERS Safety Report 20180231 (Version 1)
Quarter: 2021Q4

REPORT INFORMATION
  Report Type: Report from Study
  Country: US (occurrence: US)
  Receive Date: 20211214
  Receipt Date: 20211214
  Transmission Date: 20220303
  Serious: Yes (Hospitalization)
  Sender: FDA-Public Use
  Company Number: US-Taiho Oncology Inc-EU-2021-03859

PATIENT
  Sex: Female

DRUGS (12)
  1. LONSURF [Suspect]
     Active Substance: TIPIRACIL HYDROCHLORIDE\TRIFLURIDINE
     Indication: Colon cancer
     Dosage: CURRENT CYCLE UNKNOWN
     Route: 048
     Dates: start: 20211111
  2. ALBUTEROL [Concomitant]
     Active Substance: ALBUTEROL
     Dosage: DOSE: 0.63MG/3; NEBULIZER
  3. BENZONATATE [Concomitant]
     Active Substance: BENZONATATE
  4. ELIQUIS [Concomitant]
     Active Substance: APIXABAN
  5. LEVOTHYROXINE [Concomitant]
     Active Substance: LEVOTHYROXINE
  6. MUCINEX [Concomitant]
     Active Substance: GUAIFENESIN
  7. OMEPRAZOLE [Concomitant]
     Active Substance: OMEPRAZOLE
  8. POTASSIUM [Concomitant]
     Active Substance: POTASSIUM
  9. PROCHLORPERAZINE [Concomitant]
     Active Substance: PROCHLORPERAZINE
  10. TUMS ULTRA [Concomitant]
     Active Substance: CALCIUM CARBONATE
  11. XANAX [Concomitant]
     Active Substance: ALPRAZOLAM
  12. ZOFRAN [Concomitant]
     Active Substance: ONDANSETRON HYDROCHLORIDE

REACTIONS (5)
  - Blood iron decreased [Recovered/Resolved]
  - Hypotension [Recovered/Resolved]
  - Blood potassium decreased [Recovered/Resolved]
  - White blood cell count decreased [Recovered/Resolved]
  - Infection [Recovered/Resolved]
